FAERS Safety Report 8843038 (Version 3)
Quarter: 2013Q1

REPORT INFORMATION
  Report Type: Spontaneous
  Country: US (occurrence: US)
  Receive Date: 20121016
  Receipt Date: 20130325
  Transmission Date: 20140127
  Serious: Yes (Hospitalization)
  Sender: FDA-Public Use
  Company Number: US-GLAXOSMITHKLINE-A0997566A

PATIENT
  Sex: Female

DRUGS (1)
  1. ADVAIR [Suspect]
     Indication: PRODUCT USED FOR UNKNOWN INDICATION
     Route: 065
     Dates: end: 201109

REACTIONS (5)
  - Pneumonia [Recovering/Resolving]
  - Atypical pneumonia [Unknown]
  - Chronic obstructive pulmonary disease [Recovering/Resolving]
  - Activities of daily living impaired [Unknown]
  - Quality of life decreased [Unknown]
